FAERS Safety Report 5408131-4 (Version None)
Quarter: 2007Q3

REPORT INFORMATION
  Report Type: 
  Country: None (occurrence: None)
  Receive Date: 20070808
  Receipt Date: 20070807
  Transmission Date: 20080115
  Serious: Yes (Other)
  Sender: FDA-Public Use
  Company Number: DE-BAYER-200710814BVD

PATIENT
  Sex: Male

DRUGS (1)
  1. NIMOTOP [Suspect]
     Indication: SUBARACHNOID HAEMORRHAGE

REACTIONS (2)
  - BONE PAIN [None]
  - PAIN IN EXTREMITY [None]
